FAERS Safety Report 5046068-3 (Version None)
Quarter: 2006Q3

REPORT INFORMATION
  Report Type: 
  Country: None (occurrence: None)
  Receive Date: 20060710
  Receipt Date: 20060420
  Transmission Date: 20061208
  Serious: Yes (Life-Threatening)
  Sender: FDA-Public Use
  Company Number: 2006AP01857

PATIENT
  Age: 26801 Day
  Sex: Male

DRUGS (13)
  1. CASODEX [Suspect]
     Indication: PROSTATE CANCER
     Route: 048
     Dates: start: 20060119, end: 20060418
  2. CASODEX [Suspect]
     Indication: METASTASES TO BONE
     Route: 048
     Dates: start: 20060119, end: 20060418
  3. LEUPLIN [Suspect]
     Indication: PROSTATE CANCER
     Dosage: THIRD INJECTION GIVEN ON 29 MARCH 2006
     Route: 058
     Dates: start: 20060201, end: 20060329
  4. LEUPLIN [Suspect]
     Indication: METASTASES TO BONE
     Dosage: THIRD INJECTION GIVEN ON 29 MARCH 2006
     Route: 058
     Dates: start: 20060201, end: 20060329
  5. GASTER [Concomitant]
     Indication: GASTRITIS
     Route: 048
  6. MUCOSTA [Concomitant]
     Indication: GASTRITIS
     Route: 048
  7. NU-LOTAN [Concomitant]
     Indication: HYPERTENSION
     Route: 048
  8. NORVASC [Concomitant]
     Indication: HYPERTENSION
     Route: 048
  9. AMLODIN [Concomitant]
     Indication: HYPERTENSION
     Route: 048
  10. LASIX [Concomitant]
     Indication: OEDEMA
     Route: 048
  11. LASIX [Concomitant]
     Route: 042
  12. PREDNISOLONE [Concomitant]
     Indication: NEPHROTIC SYNDROME
     Route: 048
     Dates: start: 20060314
  13. PREDNISOLONE [Concomitant]
     Indication: INTERSTITIAL LUNG DISEASE
     Route: 048
     Dates: start: 20060314

REACTIONS (2)
  - INTERSTITIAL LUNG DISEASE [None]
  - RENAL FAILURE ACUTE [None]
